FAERS Safety Report 8422036-6 (Version None)
Quarter: 2012Q2

REPORT INFORMATION
  Report Type: 
  Country: None (occurrence: None)
  Receive Date: 20120323
  Receipt Date: 20110617
  Transmission Date: 20120825
  Serious: Yes (Hospitalization)
  Sender: FDA-Public Use
  Company Number: 163-21880-11021406

PATIENT
  Age: 59 Year
  Sex: Male

DRUGS (5)
  1. COUMADIN [Concomitant]
  2. ASPIRIN [Concomitant]
  3. LENALIDOMIDE [Suspect]
     Indication: MULTIPLE MYELOMA
     Dosage: 25 MG, QD X 14 DAYS, PO, 25 MG, 1 IN 1 D, PO, 15-10MG, PO
     Route: 048
     Dates: start: 20090501
  4. LENALIDOMIDE [Suspect]
     Indication: MULTIPLE MYELOMA
     Dosage: 25 MG, QD X 14 DAYS, PO, 25 MG, 1 IN 1 D, PO, 15-10MG, PO
     Route: 048
     Dates: start: 20101224
  5. LENALIDOMIDE [Suspect]
     Indication: MULTIPLE MYELOMA
     Dosage: 25 MG, QD X 14 DAYS, PO, 25 MG, 1 IN 1 D, PO, 15-10MG, PO
     Route: 048
     Dates: start: 20110401

REACTIONS (2)
  - THROMBOSIS [None]
  - PLATELET COUNT DECREASED [None]
